FAERS Safety Report 4840374-0 (Version None)
Quarter: 2005Q4

REPORT INFORMATION
  Report Type: 
  Country: None (occurrence: None)
  Receive Date: 20051025
  Receipt Date: 20040916
  Transmission Date: 20060501
  Serious: Yes (Hospitalization)
  Sender: FDA-Public Use
  Company Number: 2004-BP-04439BP

PATIENT
  Sex: Female

DRUGS (1)
  1. COMBIVENT [Suspect]
     Dosage: 12 PUF (SEE TEXT,18 MCG /103 MCG 3 PUFFS QID),IH
     Dates: start: 20000101

REACTIONS (3)
  - DYSGEUSIA [None]
  - RESPIRATORY DISORDER [None]
  - URINARY TRACT INFECTION [None]
